FAERS Safety Report 21400658 (Version 2)
Quarter: 2022Q4

REPORT INFORMATION
  Report Type: Report from Study
  Country: US (occurrence: None)
  Receive Date: 20221003
  Receipt Date: 20221221
  Transmission Date: 20230113
  Serious: Yes (Other)
  Sender: FDA-Public Use
  Company Number: US-Merck Healthcare KGaA-9354324

PATIENT
  Age: 65 Year
  Sex: Female

DRUGS (1)
  1. REBIF [Suspect]
     Active Substance: INTERFERON BETA-1A
     Indication: Product used for unknown indication
     Route: 058
     Dates: start: 2011

REACTIONS (4)
  - Fall [Unknown]
  - Skin injury [Recovered/Resolved]
  - Skull fracture [Recovered/Resolved]
  - Facial spasm [Unknown]

NARRATIVE: CASE EVENT DATE: 20220401
